FAERS Safety Report 10243327 (Version 1)
Quarter: 2014Q2

REPORT INFORMATION
  Report Type: Spontaneous
  Country: US (occurrence: None)
  Receive Date: 20140616
  Receipt Date: 20140616
  Transmission Date: 20141212
  Serious: No
  Sender: FDA-Public Use
  Company Number: None

PATIENT
  Age: 63 Year
  Sex: Male
  Weight: 83.92 kg

DRUGS (1)
  1. LIOTHYRONINE SODIUM [Suspect]
     Indication: HYPOTHYROIDISM
     Route: 048
     Dates: start: 20140601, end: 20140603

REACTIONS (6)
  - Chills [None]
  - Abdominal discomfort [None]
  - Diarrhoea [None]
  - Paraesthesia [None]
  - Tachyphrenia [None]
  - Insomnia [None]
